FAERS Safety Report 19127666 (Version 1)
Quarter: 2021Q2

REPORT INFORMATION
  Report Type: Spontaneous
  Country: US (occurrence: US)
  Receive Date: 20210413
  Receipt Date: 20210413
  Transmission Date: 20210717
  Serious: No
  Sender: FDA-Public Use
  Company Number: US-ALLERGAN-2027115US

PATIENT
  Age: 71 Year
  Sex: Female
  Weight: 140 kg

DRUGS (3)
  1. COMBIGAN [Concomitant]
     Active Substance: BRIMONIDINE TARTRATE\TIMOLOL MALEATE
     Dosage: UNK
     Route: 047
     Dates: start: 2005
  2. BRINZOLAMIDE [Concomitant]
     Active Substance: BRINZOLAMIDE
     Dosage: UNK
     Dates: start: 2015
  3. LUMIGAN [Suspect]
     Active Substance: BIMATOPROST
     Indication: OPEN ANGLE GLAUCOMA
     Dosage: 2 GTT, QHS
     Route: 047
     Dates: start: 2005

REACTIONS (3)
  - Visual acuity reduced [Recovered/Resolved]
  - Eye pruritus [Not Recovered/Not Resolved]
  - Iris discolouration [Recovered/Resolved]

NARRATIVE: CASE EVENT DATE: 202007
